FAERS Safety Report 4370709-7 (Version None)
Quarter: 2004Q2

REPORT INFORMATION
  Report Type: 
  Country: None (occurrence: None)
  Receive Date: 20040601
  Receipt Date: 20040520
  Transmission Date: 20050107
  Serious: Yes (Hospitalization)
  Sender: FDA-Public Use
  Company Number: HQWYE059420MAY04

PATIENT
  Age: 73 Year
  Sex: Male

DRUGS (5)
  1. ARTANE [Suspect]
     Indication: PARKINSON'S DISEASE
     Dosage: 4 MG 1X PER 1 DAY ORAL
     Route: 048
     Dates: start: 20020107, end: 20020113
  2. FLUVOXAMINE MALEATE [Suspect]
     Indication: DEPRESSION
     Dosage: 50 MG 1X PER 1 DAY ORAL
     Route: 048
     Dates: start: 20000117, end: 20020111
  3. GRAMALIL (TIAPRIDE HYDROCHLORIDE) [Concomitant]
  4. ARICEPT [Concomitant]
  5. APLACE (TROXIPIDE) [Concomitant]

REACTIONS (8)
  - ALANINE AMINOTRANSFERASE INCREASED [None]
  - ASPARTATE AMINOTRANSFERASE INCREASED [None]
  - BLOOD UREA INCREASED [None]
  - C-REACTIVE PROTEIN INCREASED [None]
  - HAEMATOCRIT DECREASED [None]
  - NEUROLEPTIC MALIGNANT SYNDROME [None]
  - PROTEIN URINE PRESENT [None]
  - UROBILIN URINE PRESENT [None]
